FAERS Safety Report 4300622-2 (Version None)
Quarter: 2004Q1

REPORT INFORMATION
  Report Type: 
  Country: None (occurrence: None)
  Receive Date: 20040217
  Receipt Date: 20040204
  Transmission Date: 20041129
  Serious: Yes (Death, Hospitalization)
  Sender: FDA-Public Use
  Company Number: 2003126080

PATIENT
  Age: 24 Year
  Sex: Female
  Weight: 59.5 kg

DRUGS (7)
  1. SERTRALINE HCL [Suspect]
     Indication: ILL-DEFINED DISORDER
     Dosage: 1400 MG ONCE, ORAL
     Route: 048
     Dates: start: 20031122, end: 20031122
  2. ATENOLOL [Suspect]
     Indication: ILL-DEFINED DISORDER
     Dosage: 350 MG ONCE, ORAL
     Route: 048
     Dates: start: 20031122, end: 20031122
  3. PARACETAMOL (PARACETAMOL) [Suspect]
     Indication: ILL-DEFINED DISORDER
     Dosage: ONCE, ORAL
     Route: 048
     Dates: start: 20031122, end: 20031122
  4. ACETYLSALICYLIC ACID SRT [Suspect]
     Indication: ILL-DEFINED DISORDER
     Dosage: ONCE, ORAL
     Route: 048
     Dates: start: 20031122, end: 20031122
  5. VENLAFAXINE HCL [Suspect]
     Indication: ILL-DEFINED DISORDER
     Dosage: 1200 MG ONCE, ORAL
     Route: 048
     Dates: start: 20010403, end: 20031122
  6. ETHANOL (ETHANOL) [Suspect]
     Indication: ILL-DEFINED DISORDER
     Dosage: ONCE
     Dates: start: 20031122, end: 20031122
  7. ALL OTHER THERAPEUTIC PRODUCTS [Concomitant]

REACTIONS (19)
  - AGITATION [None]
  - CARDIAC ARREST [None]
  - CARDIAC DISORDER [None]
  - CYANOSIS [None]
  - DEPRESSED LEVEL OF CONSCIOUSNESS [None]
  - DISORIENTATION [None]
  - DRUG ABUSER [None]
  - FEELING ABNORMAL [None]
  - GRAND MAL CONVULSION [None]
  - HYPERTENSION [None]
  - INTENTIONAL OVERDOSE [None]
  - MULTIPLE DRUG OVERDOSE [None]
  - NAUSEA [None]
  - PERIPHERAL COLDNESS [None]
  - PERSONALITY DISORDER [None]
  - RETCHING [None]
  - SEROTONIN SYNDROME [None]
  - TACHYCARDIA [None]
  - VENTRICULAR TACHYCARDIA [None]
